FAERS Safety Report 7465151-6 (Version None)
Quarter: 2011Q2

REPORT INFORMATION
  Report Type: 
  Country: None (occurrence: None)
  Receive Date: 20110505
  Receipt Date: 20110505
  Transmission Date: 20111010
  Serious: No
  Sender: FDA-Public Use
  Company Number: None

PATIENT
  Age: 45 Year
  Sex: Female
  Weight: 62.5964 kg

DRUGS (1)
  1. MINOXIDIL (FOR WOMEN) [Suspect]
     Indication: HAIR DISORDER
     Dosage: 1 ML 2 TIME DAY DROPPER
     Dates: start: 20110320, end: 20110415

REACTIONS (4)
  - PRURITUS [None]
  - THERMAL BURN [None]
  - SKIN BURNING SENSATION [None]
  - IMPETIGO [None]
